FAERS Safety Report 5479877-7 (Version None)
Quarter: 2007Q4

REPORT INFORMATION
  Report Type: 
  Country: None (occurrence: None)
  Receive Date: 20071008
  Receipt Date: 20071001
  Transmission Date: 20080405
  Serious: Yes (Other)
  Sender: FDA-Public Use
  Company Number: US-ROXANE LABORATORIES, INC-2007-BP-22003RO

PATIENT
  Age: 44 Year
  Sex: Female

DRUGS (11)
  1. CITALOPRAM HYDROBROMIDE [Suspect]
     Indication: DEPRESSION
     Route: 048
  2. CITALOPRAM HYDROBROMIDE [Suspect]
     Route: 048
  3. MEPERIDINE HCL [Suspect]
     Indication: BREAKTHROUGH PAIN
     Route: 042
  4. HYDROMORPHONE HCL [Suspect]
     Indication: PAIN
     Route: 042
  5. ACETAMINOPHEN AND HYDROCODONE BITARTRATE [Suspect]
     Indication: PAIN
     Route: 048
  6. PROMETHAZINE [Suspect]
     Indication: NAUSEA
     Route: 042
  7. GATIFLOXACIN [Concomitant]
     Indication: WOUND INFECTION
  8. ZOLPIDEM TARTRATE [Concomitant]
  9. LANSOPRAZOLE [Concomitant]
  10. ENOXAPARIN SODIUM [Concomitant]
     Route: 058
  11. FENTANYL [Concomitant]
     Route: 061

REACTIONS (3)
  - DEPRESSION [None]
  - DRUG INTERACTION [None]
  - SEROTONIN SYNDROME [None]
